FAERS Safety Report 5655713-0 (Version None)
Quarter: 2008Q1

REPORT INFORMATION
  Report Type: 
  Country: None (occurrence: None)
  Receive Date: 20080307
  Receipt Date: 20080225
  Transmission Date: 20080703
  Serious: Yes (Hospitalization, Other)
  Sender: FDA-Public Use
  Company Number: US-PFIZER INC-2002056749

PATIENT
  Age: 51 Year
  Sex: Male

DRUGS (1)
  1. VIAGRA [Suspect]
     Dosage: DAILY DOSE:25MG

REACTIONS (5)
  - BLOOD PRESSURE SYSTOLIC INCREASED [None]
  - CEREBROVASCULAR ACCIDENT [None]
  - FEELING ABNORMAL [None]
  - GLOBAL AMNESIA [None]
  - LEFT VENTRICULAR HYPERTROPHY [None]
